FAERS Safety Report 5340351-X (Version None)
Quarter: 2007Q2

REPORT INFORMATION
  Report Type: 
  Country: None (occurrence: None)
  Receive Date: 20070405
  Receipt Date: 20070102
  Transmission Date: 20071010
  Serious: No
  Sender: FDA-Public Use
  Company Number: US200701000511

PATIENT
  Age: 40 Year
  Sex: Female

DRUGS (1)
  1. CYMBALTA [Suspect]
     Dosage: 90  MG
     Dates: start: 20051201

REACTIONS (4)
  - AKATHISIA [None]
  - ANXIETY [None]
  - FORMICATION [None]
  - NERVOUSNESS [None]
